FAERS Safety Report 21714101 (Version 1)
Quarter: 2022Q4

REPORT INFORMATION
  Report Type: Report from Study
  Country: IT (occurrence: IT)
  Receive Date: 20221212
  Receipt Date: 20221212
  Transmission Date: 20230113
  Serious: Yes (Other)
  Sender: FDA-Public Use
  Company Number: IT-ROCHE-3191608

PATIENT
  Age: 76 Year
  Sex: Female
  Weight: 56 kg

DRUGS (4)
  1. DOCETAXEL [Suspect]
     Active Substance: DOCETAXEL
     Indication: HER2 positive breast cancer
     Dosage: 100 MG, Q3W, MOST RECENT DOSE PRIOR TO 17-JAN-2018
     Route: 042
     Dates: start: 20071003, end: 20071003
  2. PERTUZUMAB [Suspect]
     Active Substance: PERTUZUMAB
     Indication: HER2 positive breast cancer
     Dosage: 840 MILLIGRAM, Q3W, MOST RECENT DOSE PRIOR TO THE EVENT 24-OCT-2017
     Route: 042
     Dates: start: 20171003, end: 20171003
  3. TRASTUZUMAB [Suspect]
     Active Substance: TRASTUZUMAB
     Indication: HER2 positive breast cancer
     Dosage: 440 MG, MOST RECENT DOSE PRIOR TO 24-OCT-2017
     Route: 042
     Dates: start: 20171003, end: 20171003
  4. ATORVASTATIN [Concomitant]
     Active Substance: ATORVASTATIN
     Dosage: UNK, ONGOING
     Route: 065
     Dates: start: 20040615

REACTIONS (1)
  - Aortic valve incompetence [Not Recovered/Not Resolved]

NARRATIVE: CASE EVENT DATE: 20200115
